FAERS Safety Report 17165960 (Version 1)
Quarter: 2019Q4

REPORT INFORMATION
  Report Type: Spontaneous
  Country: US (occurrence: US)
  Receive Date: 20191217
  Receipt Date: 20191217
  Transmission Date: 20200122
  Serious: Yes (Hospitalization)
  Sender: FDA-Public Use
  Company Number: US-ASTRAZENECA-2019SF81829

PATIENT
  Sex: Male
  Weight: 6.7 kg

DRUGS (2)
  1. DIURIL [Concomitant]
     Active Substance: CHLOROTHIAZIDE
  2. SYNAGIS [Suspect]
     Active Substance: PALIVIZUMAB
     Indication: RESPIRATORY SYNCYTIAL VIRUS INFECTION
     Route: 030

REACTIONS (1)
  - Respiratory syncytial virus infection [Unknown]
